FAERS Safety Report 17555983 (Version 1)
Quarter: 2020Q1

REPORT INFORMATION
  Report Type: Spontaneous
  Country: CA (occurrence: CA)
  Receive Date: 20200318
  Receipt Date: 20200318
  Transmission Date: 20200409
  Serious: Yes (Hospitalization)
  Sender: FDA-Public Use
  Company Number: CA-B.I. PHARMACEUTICALS,INC./RIDGEFIELD-2020-BI-014304

PATIENT
  Age: 70 Year
  Sex: Male

DRUGS (3)
  1. OPIUM [PAPAVER SOMNIFERUM] [Suspect]
     Active Substance: OPIUM
     Indication: PAIN
     Route: 065
  2. NITROGLYCERIN. [Suspect]
     Active Substance: NITROGLYCERIN
     Indication: ARTERITIS
     Route: 065
  3. PRADAXA [Suspect]
     Active Substance: DABIGATRAN ETEXILATE MESYLATE
     Indication: ARTERITIS
     Route: 065

REACTIONS (6)
  - Product use in unapproved indication [Recovering/Resolving]
  - Condition aggravated [Recovering/Resolving]
  - Skin ulcer [Recovering/Resolving]
  - Peripheral ischaemia [Recovering/Resolving]
  - Dry gangrene [Recovering/Resolving]
  - Drug ineffective [Recovering/Resolving]
